FAERS Safety Report 21373766 (Version 1)
Quarter: 2022Q3

REPORT INFORMATION
  Report Type: Spontaneous
  Country: DE (occurrence: DE)
  Receive Date: 20220926
  Receipt Date: 20220926
  Transmission Date: 20221027
  Serious: Yes (Hospitalization, Other)
  Sender: FDA-Public Use
  Company Number: DE-ADRED-07245-01

PATIENT
  Age: 60 Year
  Sex: Female
  Weight: 70 kg

DRUGS (3)
  1. QUETIAPINE [Suspect]
     Active Substance: QUETIAPINE
     Indication: Product used for unknown indication
     Dosage: UNK, (50 MG, 0-0-0-1, TABLETS)
     Route: 048
  2. QUETIAPINE [Suspect]
     Active Substance: QUETIAPINE
     Dosage: UNK, (200MG, 0-0-0-1, TABLETS)
     Route: 048
  3. BUPROPION [Suspect]
     Active Substance: BUPROPION
     Indication: Product used for unknown indication
     Dosage: UNK, 300 MG, 1-0-0-0, RETARD-TABLETTEN
     Route: 048

REACTIONS (15)
  - Depressed mood [Unknown]
  - Abdominal discomfort [Unknown]
  - Hypokalaemia [Unknown]
  - Anxiety [Unknown]
  - Job dissatisfaction [Unknown]
  - Decreased appetite [Unknown]
  - Weight decreased [Unknown]
  - Thinking abnormal [Unknown]
  - Renal failure [Unknown]
  - Hallucination, auditory [Unknown]
  - Persecutory delusion [Unknown]
  - Restlessness [Unknown]
  - Schizoaffective disorder [Unknown]
  - Hyponatraemia [Unknown]
  - Illusion [Unknown]
